FAERS Safety Report 25012141 (Version 1)
Quarter: 2025Q1

REPORT INFORMATION
  Report Type: Spontaneous
  Country: US (occurrence: US)
  Receive Date: 20250226
  Receipt Date: 20250226
  Transmission Date: 20250409
  Serious: No
  Sender: BAXTER
  Company Number: US-BAXTER-2023BAX017090

PATIENT
  Weight: 97.4 kg

DRUGS (1)
  1. HEPARIN SODIUM [Suspect]
     Active Substance: HEPARIN SODIUM
     Route: 042
     Dates: start: 20230131

REACTIONS (4)
  - Therapy non-responder [Unknown]
  - Investigation abnormal [Unknown]
  - Device infusion issue [Unknown]
  - Device alarm issue [Unknown]

NARRATIVE: CASE EVENT DATE: 20230131
